FAERS Safety Report 25664869 (Version 1)
Quarter: 2025Q3

REPORT INFORMATION
  Report Type: Spontaneous
  Country: US (occurrence: None)
  Receive Date: 20250808
  Receipt Date: 20250808
  Transmission Date: 20251021
  Serious: Yes (Other)
  Sender: FDA-CTU
  Company Number: None

PATIENT
  Sex: Female

DRUGS (11)
  1. LENALIDOMIDE [Suspect]
     Active Substance: LENALIDOMIDE
     Indication: Plasma cell myeloma
     Dosage: FREQUENCY : DAILY;?
     Route: 048
     Dates: start: 20250201
  2. ACYCLOVIR TAB [Concomitant]
  3. ASPIRIN CHW [Concomitant]
  4. BACLOFEN [Concomitant]
     Active Substance: BACLOFEN
  5. DEXAMETHASON TAB [Concomitant]
  6. DICLOFENAC [Concomitant]
     Active Substance: DICLOFENAC
  7. FAMOTIDINE TAB [Concomitant]
  8. FUROSEMIDE TAB [Concomitant]
  9. GABAPENTIN TAB [Concomitant]
  10. LEVOTHYROXIN TAB [Concomitant]
  11. LOSARTAN POT TAB [Concomitant]

REACTIONS (1)
  - Therapy interrupted [None]
